FAERS Safety Report 10375204 (Version 4)
Quarter: 2014Q4

REPORT INFORMATION
  Report Type: Report from Study
  Country: US (occurrence: US)
  Receive Date: 20140811
  Receipt Date: 20141112
  Transmission Date: 20150528
  Serious: Yes (Other)
  Sender: FDA-Public Use
  Company Number: US-SA-2014SA104219

PATIENT
  Age: 56 Year
  Sex: Female

DRUGS (4)
  1. CORTICOSTEROIDS [Suspect]
     Active Substance: CORTICOSTEROID NOS
     Route: 065
  2. LANTUS [Suspect]
     Active Substance: INSULIN GLARGINE
     Indication: TYPE 2 DIABETES MELLITUS
     Dosage: DOSAGE:28 (UNITS UNSPECIFIED)?VIAL
     Route: 065
     Dates: start: 20140923
  3. LANTUS [Suspect]
     Active Substance: INSULIN GLARGINE
     Indication: TYPE 2 DIABETES MELLITUS
     Route: 065
     Dates: start: 20141103
  4. LANTUS [Suspect]
     Active Substance: INSULIN GLARGINE
     Indication: TYPE 2 DIABETES MELLITUS
     Dosage: DOSAGE:24 (UNITS UNSPECIFIED)?VIAL
     Route: 065
     Dates: start: 20140729

REACTIONS (8)
  - Back disorder [Not Recovered/Not Resolved]
  - Back pain [Not Recovered/Not Resolved]
  - Cough [Unknown]
  - Abdominal discomfort [Unknown]
  - Blood glucose decreased [Recovered/Resolved]
  - Decreased appetite [Unknown]
  - Blood glucose increased [Unknown]
  - Hunger [Unknown]

NARRATIVE: CASE EVENT DATE: 20140730
